FAERS Safety Report 23527760 (Version 1)
Quarter: 2024Q1

REPORT INFORMATION
  Report Type: Spontaneous
  Country: US (occurrence: US)
  Receive Date: 20240215
  Receipt Date: 20240215
  Transmission Date: 20240410
  Serious: No
  Sender: FDA-Public Use
  Company Number: US-ELI_LILLY_AND_COMPANY-US202402006083

PATIENT
  Age: 76 Year
  Sex: Female

DRUGS (3)
  1. BASAGLAR [Suspect]
     Active Substance: INSULIN GLARGINE
     Indication: Product used for unknown indication
     Dosage: 32 U, DAILY
     Route: 065
     Dates: start: 202305
  2. BASAGLAR [Suspect]
     Active Substance: INSULIN GLARGINE
     Dosage: 32 U, DAILY
     Route: 065
     Dates: start: 202305
  3. BASAGLAR [Suspect]
     Active Substance: INSULIN GLARGINE
     Dosage: 32 U, DAILY
     Route: 065
     Dates: start: 202305

REACTIONS (3)
  - Fatigue [Unknown]
  - Cataract [Unknown]
  - Incorrect dose administered [Unknown]
